FAERS Safety Report 5444682-4 (Version None)
Quarter: 2007Q3

REPORT INFORMATION
  Report Type: 
  Country: None (occurrence: None)
  Receive Date: 20070906
  Receipt Date: 20070228
  Transmission Date: 20080115
  Serious: No
  Sender: FDA-Public Use
  Company Number: A0637499A

PATIENT
  Sex: Female
  Weight: 61.8 kg

DRUGS (2)
  1. REQUIP [Suspect]
     Dosage: .25MG AT NIGHT
  2. GABAPENTIN [Concomitant]

REACTIONS (1)
  - THERAPEUTIC RESPONSE UNEXPECTED [None]
